FAERS Safety Report 20032361 (Version 1)
Quarter: 2021Q4

REPORT INFORMATION
  Report Type: Spontaneous
  Country: US (occurrence: US)
  Receive Date: 20211103
  Receipt Date: 20211103
  Transmission Date: 20220303
  Serious: No
  Sender: FDA-Public Use
  Company Number: US-ALLERGAN-2126767US

PATIENT

DRUGS (3)
  1. VRAYLAR [Suspect]
     Active Substance: CARIPRAZINE
     Indication: Bipolar I disorder
     Dosage: 1.5 MG
  2. VRAYLAR [Suspect]
     Active Substance: CARIPRAZINE
     Indication: Mania
  3. RISPERIDONE [Concomitant]
     Active Substance: RISPERIDONE
     Dosage: 3 MG

REACTIONS (2)
  - Negative thoughts [Not Recovered/Not Resolved]
  - Anxiety [Not Recovered/Not Resolved]
